FAERS Safety Report 6648174-6 (Version None)
Quarter: 2010Q1

REPORT INFORMATION
  Report Type: 
  Country: None (occurrence: None)
  Receive Date: 20100309
  Receipt Date: 20100125
  Transmission Date: 20100710
  Serious: No
  Sender: FDA-Public Use
  Company Number: 2010SP005557

PATIENT
  Age: 58 Year
  Sex: Female

DRUGS (11)
  1. SAPHRIS [Suspect]
     Indication: DRUG USE FOR UNKNOWN INDICATION
     Dosage: 10 MG; BID; SL
  2. ALVESCO [Concomitant]
  3. AMLODIPINE [Concomitant]
  4. ASPIRIN [Concomitant]
  5. ATIVAN [Concomitant]
  6. FLONASE [Concomitant]
  7. LACTULOSE [Concomitant]
  8. LISINOPRIL [Concomitant]
  9. MORPHINE SULFATE [Concomitant]
  10. PAXIL [Concomitant]
  11. RANITIDINE HCL [Concomitant]

REACTIONS (2)
  - HYPOAESTHESIA ORAL [None]
  - PHARYNGEAL HYPOAESTHESIA [None]
